FAERS Safety Report 8451367-9 (Version None)
Quarter: 2012Q2

REPORT INFORMATION
  Report Type: 
  Country: None (occurrence: None)
  Receive Date: 20120620
  Receipt Date: 20120321
  Transmission Date: 20120825
  Serious: No
  Sender: FDA-Public Use
  Company Number: US-VERTEX PHARMACEUTICALS INC.-AE-2012-002802

PATIENT
  Sex: Male
  Weight: 91.254 kg

DRUGS (7)
  1. AMBIEN [Concomitant]
     Indication: INSOMNIA
     Route: 048
  2. PEGASYS [Concomitant]
     Indication: HEPATITIS C
     Route: 058
     Dates: start: 20120212
  3. RESTORIL [Concomitant]
     Indication: INSOMNIA
     Route: 048
  4. INCIVEK [Suspect]
     Indication: HEPATITIS C
     Route: 048
     Dates: start: 20120212
  5. RIBAVIRIN [Concomitant]
     Indication: HEPATITIS C
     Route: 048
     Dates: start: 20120212
  6. LISINOPRIL [Concomitant]
     Indication: HYPERTENSION
     Route: 048
  7. XANAX [Concomitant]
     Indication: ANXIETY
     Route: 048

REACTIONS (7)
  - DRUG DOSE OMISSION [None]
  - RASH GENERALISED [None]
  - INSOMNIA [None]
  - HAEMORRHOIDS [None]
  - ANORECTAL DISCOMFORT [None]
  - PROCTALGIA [None]
  - DIARRHOEA [None]
